FAERS Safety Report 4418011-9 (Version None)
Quarter: 2004Q3

REPORT INFORMATION
  Report Type: 
  Country: None (occurrence: None)
  Receive Date: 20040804
  Receipt Date: 20040721
  Transmission Date: 20050211
  Serious: Yes (Other)
  Sender: FDA-Public Use
  Company Number: 2004-BP-05114AU

PATIENT
  Sex: Female

DRUGS (1)
  1. ASASANTIN SR (KAR) (ACETYLSALICYLIC ACID, DIPYRIDAMOLE) [Suspect]
     Dosage: (SEE TEXT, STRENGTH 200/25 MG/KG
     Dates: start: 20030101

REACTIONS (1)
  - BASAL CELL CARCINOMA [None]
